FAERS Safety Report 25139763 (Version 1)
Quarter: 2025Q1

REPORT INFORMATION
  Report Type: Spontaneous
  Country: US (occurrence: US)
  Receive Date: 20250331
  Receipt Date: 20250331
  Transmission Date: 20250408
  Serious: Yes (Other)
  Sender: AMGEN
  Company Number: US-AMGEN-USASP2025058215

PATIENT
  Age: 66 Year
  Sex: Male

DRUGS (3)
  1. CARFILZOMIB [Suspect]
     Active Substance: CARFILZOMIB
     Indication: Plasma cell myeloma
     Route: 065
  2. CYCLOPHOSPHAMIDE [Suspect]
     Active Substance: CYCLOPHOSPHAMIDE
     Indication: Plasma cell myeloma
     Route: 065
  3. DEXAMETHASONE [Suspect]
     Active Substance: DEXAMETHASONE
     Indication: Plasma cell myeloma
     Route: 065

REACTIONS (8)
  - Atrioventricular block complete [Recovering/Resolving]
  - Cardiac failure acute [Recovering/Resolving]
  - Pulmonary oedema [Unknown]
  - Blood creatinine increased [Unknown]
  - Atrioventricular block second degree [Unknown]
  - Bundle branch block left [Unknown]
  - Bundle branch block right [Unknown]
  - Off label use [Unknown]
